FAERS Safety Report 17127315 (Version 4)
Quarter: 2022Q3

REPORT INFORMATION
  Report Type: Spontaneous
  Country: JP (occurrence: JP)
  Receive Date: 20191209
  Receipt Date: 20220714
  Transmission Date: 20221027
  Serious: Yes (Hospitalization)
  Sender: FDA-Public Use
  Company Number: JP-BRISTOL-MYERS SQUIBB COMPANY-BMS-2019-117207

PATIENT
  Age: 80 Year
  Sex: Female
  Weight: 32.8 kg

DRUGS (8)
  1. OPDIVO [Suspect]
     Active Substance: NIVOLUMAB
     Indication: Non-small cell lung cancer recurrent
     Dosage: 240 MG
     Route: 041
     Dates: start: 20190529, end: 20191113
  2. DOCETAXEL [Suspect]
     Active Substance: DOCETAXEL
     Indication: Non-small cell lung cancer recurrent
     Dosage: 60 MG/M2
     Route: 041
     Dates: start: 20190529
  3. DOCETAXEL [Suspect]
     Active Substance: DOCETAXEL
     Dosage: 50 MG/M2
     Route: 041
     Dates: start: 20190626, end: 20191113
  4. ACETAMINOPHEN [Concomitant]
     Active Substance: ACETAMINOPHEN
     Indication: Pain management
     Dosage: 500 MG, Q8H
     Route: 048
     Dates: start: 20180320
  5. URSODIOL [Concomitant]
     Active Substance: URSODIOL
     Indication: Cholangitis
     Dosage: 200 MG, Q8H
     Route: 048
     Dates: start: 20171028
  6. LORATADINE [Concomitant]
     Active Substance: LORATADINE
     Indication: Rhinitis
     Dosage: 10 MG, EVERYDAY
     Route: 048
     Dates: start: 20171005
  7. MAGNESIUM OXIDE [Concomitant]
     Active Substance: MAGNESIUM OXIDE
     Indication: Dysbiosis
     Dosage: 330 MG, Q12H
     Route: 048
     Dates: start: 20171005
  8. Hachiazule [Concomitant]
     Indication: Prophylaxis
     Dosage: 2 G
     Route: 002
     Dates: start: 20181003

REACTIONS (2)
  - Drug eruption [Recovering/Resolving]
  - Stomatitis [Recovered/Resolved]

NARRATIVE: CASE EVENT DATE: 20191125
